FAERS Safety Report 8808820 (Version 1)
Quarter: 2012Q4

REPORT INFORMATION
  Report Type: Spontaneous
  Country: IT (occurrence: None)
  Receive Date: 20120920
  Receipt Date: 20120920
  Transmission Date: 20130627
  Serious: Yes (Other)
  Sender: FDA-Public Use
  Company Number: TPA2012A06751

PATIENT
  Age: 87 Year
  Sex: Female

DRUGS (4)
  1. ADENURIC [Suspect]
     Indication: HYPERURICEMIA
     Route: 048
     Dates: start: 20120518, end: 20120518
  2. PANTOPRAZOLE SODIUM SESQUIHYDRATE [Concomitant]
  3. LASIX (FUROSEMIDE) [Concomitant]
  4. TAREG (VALSARTAN) [Concomitant]

REACTIONS (2)
  - Wheezing [None]
  - Urticaria [None]
